FAERS Safety Report 8809464 (Version 2)
Quarter: 2012Q4

REPORT INFORMATION
  Report Type: 
  Country: CA (occurrence: CA)
  Receive Date: 20120926
  Receipt Date: 20121018
  Transmission Date: 20130627
  Serious: Yes (Other)
  Sender: FDA-Public Use
  Company Number: CA-ROCHE-1131331

PATIENT
  Age: 68 Year
  Sex: Female

DRUGS (2)
  1. XOLAIR [Suspect]
     Indication: ASTHMA
     Route: 058
     Dates: start: 20060704
  2. XOLAIR [Suspect]
     Route: 058
     Dates: start: 20121001

REACTIONS (9)
  - Nasopharyngitis [Unknown]
  - Malaise [Unknown]
  - Bronchitis [Unknown]
  - Wheezing [Unknown]
  - Cough [Unknown]
  - Influenza [Unknown]
  - Oropharyngeal pain [Unknown]
  - Helicobacter infection [Unknown]
  - Pneumonia [Unknown]
